FAERS Safety Report 8971797 (Version 1)
Quarter: 2012Q4

REPORT INFORMATION
  Report Type: 
  Country: US (occurrence: US)
  Receive Date: 20121217
  Receipt Date: 20121217
  Transmission Date: 20130627
  Serious: Yes (Other)
  Sender: FDA-Public Use
  Company Number: US-BAYER-2012-131966

PATIENT
  Age: 42 Year
  Sex: Male

DRUGS (7)
  1. BETASERON [Suspect]
     Indication: RELAPSING-REMITTING MULTIPLE SCLEROSIS
     Dosage: 8 miu, QOD
     Route: 058
     Dates: start: 20120928
  2. PROZAC [Concomitant]
  3. OXYCODONE [Concomitant]
  4. IMITREX [Concomitant]
  5. BACLOFEN [Concomitant]
  6. PRAVACHOL [Concomitant]
  7. TOPAMAX [Concomitant]

REACTIONS (3)
  - Depression [Not Recovered/Not Resolved]
  - Social avoidant behaviour [Not Recovered/Not Resolved]
  - Eating disorder [Not Recovered/Not Resolved]
